FAERS Safety Report 26178275 (Version 1)
Quarter: 2025Q4

REPORT INFORMATION
  Report Type: Report from Study
  Country: EU (occurrence: EU)
  Receive Date: 20251219
  Receipt Date: 20251219
  Transmission Date: 20260118
  Serious: Yes (Hospitalization)
  Sender: JOHNSON AND JOHNSON
  Company Number: EU-JNJFOC-20251210556

PATIENT

DRUGS (11)
  1. RISPERIDONE [Suspect]
     Active Substance: RISPERIDONE
     Indication: Product used for unknown indication
  2. RISPERIDONE [Suspect]
     Active Substance: RISPERIDONE
  3. RISPERIDONE [Suspect]
     Active Substance: RISPERIDONE
  4. RISPERIDONE [Suspect]
     Active Substance: RISPERIDONE
  5. RISPERIDONE [Suspect]
     Active Substance: RISPERIDONE
  6. RISPERIDONE [Suspect]
     Active Substance: RISPERIDONE
  7. QUETIAPINE [Interacting]
     Active Substance: QUETIAPINE
     Indication: Product used for unknown indication
  8. OLANZAPINE [Interacting]
     Active Substance: OLANZAPINE
     Indication: Product used for unknown indication
  9. ARIPIPRAZOLE [Interacting]
     Active Substance: ARIPIPRAZOLE
     Indication: Product used for unknown indication
  10. CLOZAPINE [Interacting]
     Active Substance: CLOZAPINE
     Indication: Product used for unknown indication
  11. ALCOHOL [Interacting]
     Active Substance: ALCOHOL
     Indication: Product used for unknown indication

REACTIONS (13)
  - Pneumonia aspiration [Unknown]
  - Suicidal ideation [Unknown]
  - Ventricular arrhythmia [Unknown]
  - Seizure [Unknown]
  - Mydriasis [Unknown]
  - Coma scale abnormal [Unknown]
  - Agitation [Unknown]
  - Confusional state [Unknown]
  - Hypotonia [Unknown]
  - Vomiting [Unknown]
  - Accidental overdose [Unknown]
  - Poisoning [Unknown]
  - Drug interaction [Unknown]
